FAERS Safety Report 11983485 (Version 3)
Quarter: 2016Q1

REPORT INFORMATION
  Report Type: Report from Study
  Country: JP (occurrence: JP)
  Receive Date: 20160201
  Receipt Date: 20160229
  Transmission Date: 20160526
  Serious: Yes (Hospitalization)
  Sender: FDA-Public Use
  Company Number: JP-EISAI MEDICAL RESEARCH-EC-2016-013986

PATIENT
  Age: 61 Year
  Sex: Female
  Weight: 66 kg

DRUGS (16)
  1. MYSLEE [Concomitant]
     Active Substance: ZOLPIDEM TARTRATE
  2. MAGMITT [Concomitant]
     Active Substance: MAGNESIUM OXIDE
  3. PASTARON [Concomitant]
     Active Substance: UREA
  4. MUCODYNE [Concomitant]
     Active Substance: CARBOCYSTEINE
  5. LOXOPROFEN [Concomitant]
     Active Substance: LOXOPROFEN
  6. LENVATINIB [Suspect]
     Active Substance: LENVATINIB
     Indication: GALLBLADDER CANCER
     Route: 048
     Dates: start: 20151124, end: 20151221
  7. NEXIUM [Concomitant]
     Active Substance: ESOMEPRAZOLE MAGNESIUM
  8. OXINORM [Concomitant]
     Active Substance: OXYCODONE HYDROCHLORIDE
  9. CALONAL [Concomitant]
     Active Substance: ACETAMINOPHEN
  10. AMLODIPINE [Concomitant]
     Active Substance: AMLODIPINE BESYLATE
  11. LENVATINIB [Suspect]
     Active Substance: LENVATINIB
     Route: 048
     Dates: start: 20160108, end: 20160128
  12. OXYCONTIN [Concomitant]
     Active Substance: OXYCODONE HYDROCHLORIDE
  13. KLARICID [Concomitant]
     Active Substance: CLARITHROMYCIN
  14. HYALEIN [Concomitant]
     Active Substance: HYALURONATE SODIUM
  15. OLMETEC [Concomitant]
     Active Substance: OLMESARTAN MEDOXOMIL
  16. THYRADIN S [Concomitant]
     Active Substance: LEVOTHYROXINE SODIUM

REACTIONS (1)
  - Haemobilia [Recovered/Resolved]

NARRATIVE: CASE EVENT DATE: 20160128
